FAERS Safety Report 7959752-6 (Version None)
Quarter: 2011Q4

REPORT INFORMATION
  Report Type: 
  Country: None (occurrence: None)
  Receive Date: 20111206
  Receipt Date: 20111128
  Transmission Date: 20120403
  Serious: Yes (Other)
  Sender: FDA-Public Use
  Company Number: JP-GLAXOSMITHKLINE-B0763445A

PATIENT
  Age: 29 Year
  Sex: Male

DRUGS (3)
  1. FLUTICASONE PROPIONATE [Suspect]
     Indication: ASTHMA
     Route: 055
     Dates: start: 20100301
  2. HYDROCORTISONE [Concomitant]
     Route: 048
  3. RITONAVIR [Suspect]
     Indication: HIV INFECTION
     Route: 048

REACTIONS (8)
  - WEIGHT INCREASED [None]
  - THORACIC VERTEBRAL FRACTURE [None]
  - BACK PAIN [None]
  - ACNE [None]
  - CUSHING'S SYNDROME [None]
  - OSTEOPOROSIS [None]
  - CUSHINGOID [None]
  - CENTRAL OBESITY [None]
